FAERS Safety Report 7576636-6 (Version None)
Quarter: 2011Q2

REPORT INFORMATION
  Report Type: 
  Country: None (occurrence: None)
  Receive Date: 20110628
  Receipt Date: 20110622
  Transmission Date: 20111010
  Serious: Yes (Hospitalization)
  Sender: FDA-Public Use
  Company Number: US-ELI_LILLY_AND_COMPANY-US200911007306

PATIENT
  Sex: Male
  Weight: 83.9 kg

DRUGS (12)
  1. LISINOPRIL [Concomitant]
     Indication: HYPERTENSION
     Dosage: 10 MG, DAILY (1/D)
     Route: 048
  2. MOBIC [Concomitant]
     Dosage: 15 MG, DAILY (1/D)
     Route: 048
  3. ASPIRIN [Concomitant]
     Dosage: 81 MG, DAILY (1/D)
     Route: 048
  4. CYMBALTA [Concomitant]
     Dosage: 60 MG, DAILY (1/D)
  5. VYTORIN [Concomitant]
     Indication: BLOOD CHOLESTEROL
     Dosage: 20 MG, EACH EVENING
  6. GLIPIZIDE [Concomitant]
     Dosage: 5 MG, BID
  7. BYETTA [Suspect]
     Indication: DIABETES MELLITUS
     Dosage: 5 UG, UNKNOWN
     Route: 065
     Dates: start: 20051031, end: 20090302
  8. METFORMIN HCL [Concomitant]
     Indication: DIABETES MELLITUS
     Dosage: 1000 MG, 2/D
  9. PLAVIX [Concomitant]
     Dosage: 75 MG, DAILY (1/D)
     Route: 048
  10. ACTOS                                   /AUS/ [Concomitant]
     Dosage: 30 MG, DAILY (1/D)
  11. PRILOSEC [Concomitant]
     Dosage: 20 MG, QD
  12. REGLAN [Concomitant]
     Dosage: UNK, UNKNOWN
     Dates: start: 20090224

REACTIONS (3)
  - PANCREATITIS ACUTE [None]
  - PANCREATITIS [None]
  - RENAL INJURY [None]
